FAERS Safety Report 14492363 (Version 4)
Quarter: 2018Q1

REPORT INFORMATION
  Report Type: Spontaneous
  Country: CA (occurrence: CA)
  Receive Date: 20180206
  Receipt Date: 20180309
  Transmission Date: 20180509
  Serious: Yes (Other)
  Sender: FDA-Public Use
  Company Number: CA-CELLTRION INC.-2018CA017612

PATIENT

DRUGS (2)
  1. INFLECTRA [Suspect]
     Active Substance: INFLIXIMAB-DYYB
     Dosage: 295 MG, CYCLIC (Q 0, 2, 6 WEEKS, THE EVERY 8 WEEKS)
     Route: 042
     Dates: start: 20180129
  2. INFLECTRA [Suspect]
     Active Substance: INFLIXIMAB-DYYB
     Indication: COLITIS ULCERATIVE
     Dosage: 295 MG, CYCLIC (Q 0, 2, 6 WEEKS, THE EVERY 8 WEEKS)
     Route: 042
     Dates: start: 20180115

REACTIONS (14)
  - Nausea [Not Recovered/Not Resolved]
  - Rash [Not Recovered/Not Resolved]
  - Headache [Not Recovered/Not Resolved]
  - Dizziness [Unknown]
  - Drug ineffective [Unknown]
  - Gastrointestinal pain [Not Recovered/Not Resolved]
  - Decreased appetite [Unknown]
  - Fatigue [Recovered/Resolved]
  - Infusion site pain [Recovered/Resolved]
  - Insomnia [Not Recovered/Not Resolved]
  - Abdominal pain [Not Recovered/Not Resolved]
  - Haematochezia [Not Recovered/Not Resolved]
  - Somnolence [Unknown]
  - Condition aggravated [Not Recovered/Not Resolved]

NARRATIVE: CASE EVENT DATE: 20180127
